FAERS Safety Report 25281419 (Version 1)
Quarter: 2025Q2

REPORT INFORMATION
  Report Type: Spontaneous
  Country: US (occurrence: US)
  Receive Date: 20250508
  Receipt Date: 20250508
  Transmission Date: 20250717
  Serious: No
  Sender: BRISTOL-MYERS SQUIBB COMPANY
  Company Number: US-BRISTOL-MYERS SQUIBB COMPANY-2025-064439

PATIENT
  Age: 47 Year
  Sex: Female

DRUGS (3)
  1. SPRYCEL [Suspect]
     Active Substance: DASATINIB
     Indication: Chronic myeloid leukaemia
     Route: 048
     Dates: start: 202501
  2. DASATINIB [Concomitant]
     Active Substance: DASATINIB
     Indication: Product used for unknown indication
  3. RITUXAN [Concomitant]
     Active Substance: RITUXIMAB
     Indication: Product used for unknown indication

REACTIONS (2)
  - Palmar-plantar erythrodysaesthesia syndrome [Unknown]
  - Oedema [Unknown]

NARRATIVE: CASE EVENT DATE: 20250401
